FAERS Safety Report 5754655-X (Version None)
Quarter: 2008Q2

REPORT INFORMATION
  Report Type: 
  Country: None (occurrence: None)
  Receive Date: 20080530
  Receipt Date: 20080519
  Transmission Date: 20081010
  Serious: Yes (Other)
  Sender: FDA-Public Use
  Company Number: US-PFIZER INC-2008043761

PATIENT
  Age: 2 Year
  Sex: Male

DRUGS (3)
  1. METHYLPREDNISOLONE 16MG TAB [Suspect]
  2. ALBUTEROL [Concomitant]
  3. BUDESONIDE [Concomitant]

REACTIONS (3)
  - MENTAL STATUS CHANGES [None]
  - PULMONARY OEDEMA [None]
  - PUPILS UNEQUAL [None]
